FAERS Safety Report 15565660 (Version 1)
Quarter: 2018Q4

REPORT INFORMATION
  Report Type: Spontaneous
  Country: US (occurrence: US)
  Receive Date: 20181030
  Receipt Date: 20181030
  Transmission Date: 20190205
  Serious: No
  Sender: FDA-Public Use
  Company Number: US-HORIZON-DUE-0580-2018

PATIENT
  Age: 54 Year
  Sex: Male

DRUGS (1)
  1. DUEXIS [Suspect]
     Active Substance: FAMOTIDINE\IBUPROFEN
     Indication: ARTHRALGIA
     Dosage: 1 TABLET BY MOUTH TID
     Route: 048
     Dates: start: 20180625, end: 20180928

REACTIONS (4)
  - Constipation [Unknown]
  - Abdominal discomfort [Unknown]
  - Drug ineffective [Unknown]
  - Abdominal pain upper [Unknown]

NARRATIVE: CASE EVENT DATE: 20180925
